FAERS Safety Report 15191909 (Version 2)
Quarter: 2019Q2

REPORT INFORMATION
  Report Type: Spontaneous
  Country: US (occurrence: US)
  Receive Date: 20180724
  Receipt Date: 20190527
  Transmission Date: 20190711
  Serious: Yes (Other)
  Sender: FDA-Public Use
  Company Number: US-SA-2018SA199776

PATIENT
  Age: 55 Year
  Sex: Female
  Weight: 134 kg

DRUGS (2)
  1. TAXOTERE [Suspect]
     Active Substance: DOCETAXEL
     Indication: BREAST CANCER FEMALE
     Dosage: UNK, BIW
     Route: 042
     Dates: start: 201508, end: 201508
  2. TAXOTERE [Suspect]
     Active Substance: DOCETAXEL
     Dosage: UNK, BIW
     Route: 042
     Dates: start: 201606, end: 201606

REACTIONS (1)
  - Alopecia [Recovering/Resolving]

NARRATIVE: CASE EVENT DATE: 201508
